FAERS Safety Report 18410674 (Version 1)
Quarter: 2020Q4

REPORT INFORMATION
  Report Type: Spontaneous
  Country: ES (occurrence: ES)
  Receive Date: 20201021
  Receipt Date: 20201021
  Transmission Date: 20210114
  Serious: Yes (Hospitalization, Other)
  Sender: FDA-Public Use
  Company Number: NVSC2020ES282466

PATIENT

DRUGS (6)
  1. CYCLOPHOSPHAMIDE. [Suspect]
     Active Substance: CYCLOPHOSPHAMIDE
     Indication: PROPHYLAXIS AGAINST GRAFT VERSUS HOST DISEASE
     Dosage: 50 MG/KG, QD (ON DAYS -H3 AND +4)
     Route: 042
  2. SIROLIMUS. [Suspect]
     Active Substance: SIROLIMUS
     Dosage: 2 MG (DAY -H6 ONWARDS)
     Route: 065
  3. MYCOPHENOLATE MOFETIL. [Suspect]
     Active Substance: MYCOPHENOLATE MOFETIL
     Indication: PROPHYLAXIS AGAINST GRAFT VERSUS HOST DISEASE
     Dosage: 1 G, Q8H (STARTED ON DAY -H5 UNTIL DAY -H35)
     Route: 048
  4. SIROLIMUS. [Suspect]
     Active Substance: SIROLIMUS
     Dosage: 16 NG/ML (DOSE MODIFICATION TO ACHIEVE THE TARGETED PLASMA LEVELS BETWEEN 8 AND 16 NG/ML UNTIL DAY -
     Route: 065
  5. MYCOPHENOLATE MOFETIL. [Suspect]
     Active Substance: MYCOPHENOLATE MOFETIL
     Dosage: 1 G, Q8H
     Route: 042
  6. SIROLIMUS. [Suspect]
     Active Substance: SIROLIMUS
     Indication: PROPHYLAXIS AGAINST GRAFT VERSUS HOST DISEASE
     Dosage: 6 MG (LOADING DOSE STARTED ON DAY -H5)
     Route: 065

REACTIONS (2)
  - Graft versus host disease [Unknown]
  - Product use in unapproved indication [Unknown]
